FAERS Safety Report 8179951-0 (Version None)
Quarter: 2012Q1

REPORT INFORMATION
  Report Type: 
  Country: None (occurrence: None)
  Receive Date: 20120302
  Receipt Date: 20120223
  Transmission Date: 20120608
  Serious: Yes (Hospitalization, Other)
  Sender: FDA-Public Use
  Company Number: US-BRISTOL-MYERS SQUIBB COMPANY-16306748

PATIENT
  Age: 52 Year
  Sex: Female

DRUGS (1)
  1. SPRYCEL [Suspect]
     Indication: CHRONIC MYELOID LEUKAEMIA
     Dosage: DRUG HELD IN DEC2008; RESTART MAY-2009 (100 MG OD) AND HELD; RESTART IN MAR2010, DCT IN DEC-2010.
     Dates: start: 20081001, end: 20101201

REACTIONS (8)
  - ABDOMINAL DISTENSION [None]
  - RIGHT VENTRICULAR DYSFUNCTION [None]
  - DIARRHOEA [None]
  - PULMONARY EMBOLISM [None]
  - DILATATION VENTRICULAR [None]
  - PULMONARY ARTERIAL HYPERTENSION [None]
  - PERICARDIAL EFFUSION [None]
  - PLEURAL EFFUSION [None]
